FAERS Safety Report 9196966 (Version 2)
Quarter: 2013Q3

REPORT INFORMATION
  Report Type: Spontaneous
  Country: US (occurrence: US)
  Receive Date: 20130328
  Receipt Date: 20130710
  Transmission Date: 20140515
  Serious: No
  Sender: FDA-Public Use
  Company Number: US-PFIZER INC-2013096202

PATIENT
  Age: 80 Year
  Sex: Male

DRUGS (3)
  1. INLYTA [Suspect]
     Indication: MALIGNANT NEOPLASM OF RENAL PELVIS
     Dosage: 7 MG, 2X/DAY (ONE 5 MG AND TWO 1 MG TABLETS TWICE A DAY)
     Dates: start: 20130201
  2. INLYTA [Suspect]
     Dosage: 2 MG, UNK
  3. INLYTA [Suspect]
     Dosage: 5 MG, 1X/DAY (3MG IN THE AM, 2 MG IN THE PM)

REACTIONS (1)
  - Drug intolerance [Unknown]
